FAERS Safety Report 13935096 (Version 1)
Quarter: 2017Q3

REPORT INFORMATION
  Report Type: Spontaneous
  Country: US (occurrence: None)
  Receive Date: 20170901
  Receipt Date: 20170901
  Transmission Date: 20171127
  Serious: Yes (Death, Hospitalization)
  Sender: FDA-Public Use
  Company Number: None

PATIENT
  Age: 62 Year
  Sex: Male
  Weight: 83.46 kg

DRUGS (1)
  1. MEMANTINE HYDROCHLORIDE. [Suspect]
     Active Substance: MEMANTINE HYDROCHLORIDE
     Dates: end: 20170324

REACTIONS (14)
  - Dyspnoea [None]
  - Sepsis [None]
  - Pneumonia [None]
  - Pleural effusion [None]
  - Adrenal mass [None]
  - Nausea [None]
  - Atrial fibrillation [None]
  - Chills [None]
  - Pneumothorax [None]
  - Metastases to liver [None]
  - Cough [None]
  - Abdominal pain [None]
  - Intestinal perforation [None]
  - Haemophilus test positive [None]

NARRATIVE: CASE EVENT DATE: 20170531
